FAERS Safety Report 6227364-0 (Version None)
Quarter: 2009Q2

REPORT INFORMATION
  Report Type: 
  Country: None (occurrence: None)
  Receive Date: 20090610
  Receipt Date: 20090529
  Transmission Date: 20091009
  Serious: Yes (Hospitalization)
  Sender: FDA-Public Use
  Company Number: 2009-197779-NL

PATIENT
  Age: 45 Year
  Sex: Female

DRUGS (3)
  1. VECURONIUM BROMIDE [Suspect]
     Indication: ANAESTHESIA
     Dosage: 7 MG ONCE
     Dates: start: 20090518, end: 20090518
  2. THIOPENTAL SODIUM [Concomitant]
     Dosage: 500 MG ONCE
     Dates: start: 20090518, end: 20090518
  3. FENTANYL [Suspect]
     Indication: ANAESTHESIA
     Dosage: 0.2 MG ONCE
     Dates: start: 20090518, end: 20090518

REACTIONS (4)
  - BLOOD PRESSURE DECREASED [None]
  - OBSTRUCTIVE AIRWAYS DISORDER [None]
  - SKIN SWELLING [None]
  - TACHYCARDIA [None]
